FAERS Safety Report 6315876-0 (Version None)
Quarter: 2009Q3

REPORT INFORMATION
  Report Type: 
  Country: None (occurrence: None)
  Receive Date: 20090820
  Receipt Date: 20090810
  Transmission Date: 20100115
  Serious: Yes (Other)
  Sender: FDA-Public Use
  Company Number: US-JNJFOC-20090703217

PATIENT
  Age: 38 Year
  Sex: Male
  Weight: 98.43 kg

DRUGS (3)
  1. REMICADE [Suspect]
     Route: 042
  2. REMICADE [Suspect]
     Route: 042
  3. REMICADE [Suspect]
     Indication: RHEUMATOID ARTHRITIS
     Dosage: 27 DOSES ON UNSPECIFIED DATES OVER 3-4 YEARS
     Route: 042

REACTIONS (3)
  - ATRIAL FIBRILLATION [None]
  - BLOOD MAGNESIUM DECREASED [None]
  - INFUSION RELATED REACTION [None]
